FAERS Safety Report 7108507-3 (Version None)
Quarter: 2010Q4

REPORT INFORMATION
  Report Type: 
  Country: None (occurrence: None)
  Receive Date: 20101117
  Receipt Date: 20100722
  Transmission Date: 20110411
  Serious: No
  Sender: FDA-Public Use
  Company Number: A0871903A

PATIENT
  Age: 67 Year
  Sex: Female

DRUGS (13)
  1. VOTRIENT [Suspect]
     Route: 048
     Dates: start: 20100527
  2. LEVOTHYROXINE SODIUM [Concomitant]
  3. SIMVASTATIN [Concomitant]
  4. GLYBURIDE AND METFORMIN HYDROCHLORIDE [Concomitant]
  5. ZETIA [Concomitant]
  6. WATER PILL [Concomitant]
  7. BISOPROLOL FUMARATE AND HYDROCHLOROTHIAZIDE [Concomitant]
  8. LISINOPRIL [Concomitant]
  9. CLONIDINE [Concomitant]
  10. LORTAB [Concomitant]
  11. PHENERGAN [Concomitant]
  12. MECLIZINE [Concomitant]
  13. ASPIRIN [Concomitant]

REACTIONS (1)
  - ALOPECIA [None]
